FAERS Safety Report 4439966-2 (Version None)
Quarter: 2004Q4

REPORT INFORMATION
  Report Type: 
  Country: None (occurrence: None)
  Receive Date: 20040902
  Receipt Date: 20040825
  Transmission Date: 20050328
  Serious: Yes (Hospitalization)
  Sender: FDA-Public Use
  Company Number: JP-JNJFOC-20040808004

PATIENT
  Age: 49 Year
  Sex: Female

DRUGS (6)
  1. OFLOXACIN [Suspect]
     Indication: DRUG USE FOR UNKNOWN INDICATION
     Route: 042
     Dates: start: 20040712, end: 20040720
  2. LOVENOX [Interacting]
     Indication: DRUG USE FOR UNKNOWN INDICATION
     Route: 058
     Dates: start: 20040706, end: 20040721
  3. TAZOCILLINE [Concomitant]
     Route: 042
     Dates: start: 20040712, end: 20040720
  4. TAZOCILLINE [Concomitant]
     Route: 042
     Dates: start: 20040712, end: 20040720
  5. VANCOMYCIN [Concomitant]
     Route: 042
  6. GENTAMYCIN SULFATE [Concomitant]

REACTIONS (8)
  - ACTIVATED PARTIAL THROMBOPLASTIN TIME PROLONGED [None]
  - ANTINUCLEAR ANTIBODY POSITIVE [None]
  - PELVIC INFECTION [None]
  - PEPTOSTREPTOCOCCUS INFECTION [None]
  - POSTOPERATIVE INFECTION [None]
  - SURGICAL PROCEDURE REPEATED [None]
  - THROMBOCYTHAEMIA [None]
  - UTERINE LEIOMYOMA [None]
